FAERS Safety Report 14972419 (Version 1)
Quarter: 2018Q2

REPORT INFORMATION
  Report Type: Spontaneous
  Country: US (occurrence: US)
  Receive Date: 20180605
  Receipt Date: 20180605
  Transmission Date: 20180711
  Serious: No
  Sender: FDA-Public Use
  Company Number: US-FOUNDATIONCONSUMERHC-2018-US-004862

PATIENT
  Sex: Female
  Weight: 95.26 kg

DRUGS (1)
  1. PLAN B ONE-STEP [Suspect]
     Active Substance: LEVONORGESTREL
     Dosage: 1.5MG
     Route: 048
     Dates: start: 201001, end: 201001

REACTIONS (4)
  - Menstruation delayed [Recovered/Resolved]
  - Nausea [Recovered/Resolved]
  - Breast tenderness [Recovered/Resolved]
  - Dysmenorrhoea [Recovered/Resolved]

NARRATIVE: CASE EVENT DATE: 2010
